FAERS Safety Report 6237155-2 (Version None)
Quarter: 2009Q2

REPORT INFORMATION
  Report Type: 
  Country: None (occurrence: None)
  Receive Date: 20090619
  Receipt Date: 20090504
  Transmission Date: 20091009
  Serious: No
  Sender: FDA-Public Use
  Company Number: US-ASTRAZENECA-2009UW11280

PATIENT
  Age: 22913 Day
  Sex: Female

DRUGS (9)
  1. SYMBICORT [Suspect]
     Dosage: 160/4.5, 2 PUFFS
     Route: 055
     Dates: start: 20090428
  2. FLONASE [Concomitant]
  3. NEXIUM [Concomitant]
  4. ACTIVELLA [Concomitant]
  5. NYSTATIN [Concomitant]
  6. TUSSIONEX [Concomitant]
  7. AUGMENTIN [Concomitant]
  8. ALLEGRA [Concomitant]
  9. SPIRIVA [Concomitant]

REACTIONS (1)
  - EUPHORIC MOOD [None]
